FAERS Safety Report 9997070 (Version 2)
Quarter: 2014Q1

REPORT INFORMATION
  Report Type: Report from Study
  Country: FR (occurrence: FR)
  Receive Date: 20140311
  Receipt Date: 20140327
  Transmission Date: 20141002
  Serious: Yes (Hospitalization)
  Sender: FDA-Public Use
  Company Number: FR-UCBSA-113965

PATIENT
  Age: 43 Year
  Sex: Female
  Weight: 47 kg

DRUGS (6)
  1. CERTOLIZUMAB PEGOL [Suspect]
     Indication: RHEUMATOID ARTHRITIS
     Dosage: DOSE: 1 INJECTION PER 2 WEEK
     Route: 058
     Dates: start: 20130429
  2. IMETH [Concomitant]
     Indication: RHEUMATOID ARTHRITIS
     Route: 048
     Dates: start: 2010
  3. CORTANCYL [Concomitant]
     Indication: RHEUMATOID ARTHRITIS
     Route: 048
     Dates: start: 20140217
  4. DAFALGAN [Concomitant]
     Indication: RHEUMATOID ARTHRITIS
     Route: 048
     Dates: start: 2006
  5. SPECIAFOLDINE [Concomitant]
     Indication: GASTRIC DISORDER
     Dosage: FREQUENCY: 5 X S
     Route: 048
     Dates: start: 2010
  6. EUPANTOL [Concomitant]
     Indication: GASTRIC DISORDER
     Route: 048
     Dates: start: 2010

REACTIONS (1)
  - Subcutaneous abscess [Recovered/Resolved]
